FAERS Safety Report 12733095 (Version 1)
Quarter: 2016Q3

REPORT INFORMATION
  Report Type: Spontaneous
  Country: AT (occurrence: AT)
  Receive Date: 20160912
  Receipt Date: 20160912
  Transmission Date: 20161109
  Serious: Yes (Hospitalization)
  Sender: FDA-Public Use
  Company Number: AT-009507513-1609AUT003192

PATIENT
  Sex: Male

DRUGS (2)
  1. ZERBAXA [Suspect]
     Active Substance: CEFTOLOZANE SULFATE\TAZOBACTAM SODIUM
     Indication: PSEUDOMONAS INFECTION
     Dosage: UNK
     Dates: start: 2016
  2. TAZONAM [Concomitant]
     Active Substance: TAZOBACTAM
     Indication: LUNG INFECTION PSEUDOMONAL
     Dosage: UNK
     Dates: start: 2016

REACTIONS (3)
  - Drug resistance [Unknown]
  - Off label use [Unknown]
  - Lung infection pseudomonal [Not Recovered/Not Resolved]

NARRATIVE: CASE EVENT DATE: 2016
